FAERS Safety Report 9513930 (Version 1)
Quarter: 2013Q3

REPORT INFORMATION
  Report Type: Spontaneous
  Country: US (occurrence: US)
  Receive Date: 20130910
  Receipt Date: 20130910
  Transmission Date: 20140515
  Serious: Yes (Hospitalization)
  Sender: FDA-Public Use
  Company Number: US-B.I. PHARMACEUTICALS,INC./RIDGEFIELD-2013-BI-27413GD

PATIENT
  Age: 22 Year
  Sex: Female

DRUGS (2)
  1. CLONIDINE [Suspect]
  2. FLUOXETINE [Concomitant]

REACTIONS (4)
  - Cerebrovascular accident [Unknown]
  - Vertebral artery dissection [Unknown]
  - Hypertension [Unknown]
  - Hyperhidrosis [Unknown]
